FAERS Safety Report 7602115-3 (Version None)
Quarter: 2011Q3

REPORT INFORMATION
  Report Type: 
  Country: None (occurrence: None)
  Receive Date: 20110711
  Receipt Date: 20110711
  Transmission Date: 20111222
  Serious: Yes (Other)
  Sender: FDA-Public Use
  Company Number: None

PATIENT
  Age: 62 Year
  Sex: Female
  Weight: 73.481 kg

DRUGS (5)
  1. FENTANYL-100 [Suspect]
     Indication: NEURALGIA
     Dosage: 25 MCG
     Route: 062
     Dates: start: 20110629, end: 20110706
  2. LUNESTA [Interacting]
     Dates: start: 20080101, end: 20110101
  3. HYDROCODONE BITARTRATE [Interacting]
     Dates: start: 20050101, end: 20110101
  4. DIAZEPAM [Interacting]
     Dates: start: 20090101, end: 20110101
  5. ZEGERID [Interacting]
     Dates: start: 20090101, end: 20110101

REACTIONS (5)
  - PAIN [None]
  - APPLICATION SITE PRURITUS [None]
  - APPLICATION SITE REACTION [None]
  - ARTHRALGIA [None]
  - APPLICATION SITE ERYTHEMA [None]
